FAERS Safety Report 5647921-X (Version None)
Quarter: 2008Q1

REPORT INFORMATION
  Report Type: 
  Country: None (occurrence: None)
  Receive Date: 20080303
  Receipt Date: 20080220
  Transmission Date: 20080703
  Serious: Yes (Other)
  Sender: FDA-Public Use
  Company Number: CH-PFIZER INC-2008018433

PATIENT
  Sex: Female

DRUGS (1)
  1. VIRACEPT [Suspect]

REACTIONS (1)
  - MALIGNANT NEOPLASM PROGRESSION [None]
